FAERS Safety Report 7033009-2 (Version None)
Quarter: 2010Q4

REPORT INFORMATION
  Report Type: 
  Country: None (occurrence: None)
  Receive Date: 20101007
  Receipt Date: 20101004
  Transmission Date: 20110411
  Serious: Yes (Death, Other)
  Sender: FDA-Public Use
  Company Number: GB-PFIZER INC-2010088123

PATIENT
  Age: 86 Year
  Sex: Female

DRUGS (1)
  1. DOXYCYCLINE HYCLATE [Suspect]
     Indication: INFECTION
     Route: 058

REACTIONS (3)
  - DEATH [None]
  - DRUG INTERACTION [None]
  - HYPOGLYCAEMIA [None]
